FAERS Safety Report 16412257 (Version 2)
Quarter: 2019Q2

REPORT INFORMATION
  Report Type: Spontaneous
  Country: US (occurrence: US)
  Receive Date: 20190610
  Receipt Date: 20190611
  Transmission Date: 20190711
  Serious: Yes (Life-Threatening, Hospitalization, Other)
  Sender: FDA-Public Use
  Company Number: PHHY2019US132051

PATIENT
  Age: 48 Year
  Sex: Male

DRUGS (2)
  1. PREDNISOLONE. [Suspect]
     Active Substance: PREDNISOLONE
     Indication: DRUG ERUPTION
     Dosage: UNK
     Route: 065
  2. DESLORATADINE. [Suspect]
     Active Substance: DESLORATADINE
     Indication: DRUG ERUPTION
     Dosage: UNK
     Route: 065

REACTIONS (5)
  - Purulent pericarditis [Recovering/Resolving]
  - Myocarditis [Recovering/Resolving]
  - Leukocytosis [Recovering/Resolving]
  - Cardiac failure congestive [Recovering/Resolving]
  - Staphylococcal infection [Recovering/Resolving]
